FAERS Safety Report 21655342 (Version 3)
Quarter: 2023Q1

REPORT INFORMATION
  Report Type: Other
  Country: MX (occurrence: None)
  Receive Date: 20221129
  Receipt Date: 20230123
  Transmission Date: 20230418
  Serious: Yes (Disabling, Other)
  Sender: FDA-Public Use
  Company Number: MX-ROCHE-3217938

PATIENT
  Sex: Female

DRUGS (2)
  1. MABTHERA [Suspect]
     Active Substance: RITUXIMAB
     Indication: Rheumatoid arthritis
     Dosage: 500MG/50ML
     Route: 042
     Dates: start: 20180601
  2. MABTHERA [Suspect]
     Active Substance: RITUXIMAB
     Dosage: 500MG/50ML
     Route: 042

REACTIONS (17)
  - Rheumatoid arthritis [Unknown]
  - Anaphylactic reaction [Not Recovered/Not Resolved]
  - General physical health deterioration [Not Recovered/Not Resolved]
  - Infusion related reaction [Not Recovered/Not Resolved]
  - Gait disturbance [Unknown]
  - Product counterfeit [Unknown]
  - Discomfort [Not Recovered/Not Resolved]
  - Adverse drug reaction [Not Recovered/Not Resolved]
  - Malaise [Not Recovered/Not Resolved]
  - Off label use [Unknown]
  - Off label use [Unknown]
  - General physical health deterioration [Not Recovered/Not Resolved]
  - Feeling of despair [Not Recovered/Not Resolved]
  - Condition aggravated [Not Recovered/Not Resolved]
  - Adverse drug reaction [Not Recovered/Not Resolved]
  - Walking disability [Not Recovered/Not Resolved]
  - Dyspnoea [Not Recovered/Not Resolved]
